FAERS Safety Report 17425513 (Version 1)
Quarter: 2020Q1

REPORT INFORMATION
  Report Type: Spontaneous
  Country: CA (occurrence: CA)
  Receive Date: 20200218
  Receipt Date: 20200218
  Transmission Date: 20200409
  Serious: Yes (Other)
  Sender: FDA-Public Use
  Company Number: CA-AUROBINDO-AUR-APL-2020-007809

PATIENT
  Age: 56 Year
  Sex: Male

DRUGS (1)
  1. CYCLOBENZAPRINE TABLETS [Suspect]
     Active Substance: CYCLOBENZAPRINE
     Indication: BACK PAIN
     Dosage: 10.0 MILLIGRAM, ONCE A DAY
     Route: 048

REACTIONS (3)
  - Depressed mood [Unknown]
  - Irritability [Unknown]
  - Obsessive-compulsive disorder [Unknown]
